FAERS Safety Report 16212261 (Version 1)
Quarter: 2019Q2

REPORT INFORMATION
  Report Type: Report from Study
  Country: JP (occurrence: JP)
  Receive Date: 20190418
  Receipt Date: 20190418
  Transmission Date: 20190711
  Serious: Yes (Hospitalization)
  Sender: FDA-Public Use
  Company Number: JP-PFIZER INC-2019160643

PATIENT

DRUGS (4)
  1. CYCLOSPORINE. [Suspect]
     Active Substance: CYCLOSPORINE
     Indication: BEHCET^S SYNDROME
     Dosage: UNK (INDUCTION DOSE, DOSE WAS REDUCED IN THE MAINTENANCE PHASE AT MONTH 12,24)
  2. INFLIXIMAB PFIZER [Suspect]
     Active Substance: INFLIXIMAB
     Indication: RETINITIS
  3. INFLIXIMAB PFIZER [Suspect]
     Active Substance: INFLIXIMAB
     Indication: BEHCET^S SYNDROME
     Dosage: 5 MG/KG, UNK (IN WEEKS 0, 2, AND 6 AS INDUCTION THERAPY AND THEN EVERY 8 WEEKS)
     Route: 042
  4. CYCLOSPORINE. [Suspect]
     Active Substance: CYCLOSPORINE
     Indication: RETINITIS

REACTIONS (1)
  - Cataract [Unknown]
